FAERS Safety Report 25169382 (Version 2)
Quarter: 2025Q2

REPORT INFORMATION
  Report Type: Spontaneous
  Country: FR (occurrence: FR)
  Receive Date: 20250407
  Receipt Date: 20250411
  Transmission Date: 20250716
  Serious: Yes (Other)
  Sender: TEVA
  Company Number: FR-TEVA-VS-3318033

PATIENT
  Sex: Male

DRUGS (1)
  1. PAROXETINE [Suspect]
     Active Substance: PAROXETINE
     Indication: Anxiety disorder
     Route: 065

REACTIONS (6)
  - Drug dependence [Recovered/Resolved]
  - Drug ineffective [Unknown]
  - Product substitution issue [Unknown]
  - Asthenia [Recovered/Resolved]
  - Withdrawal syndrome [Recovered/Resolved]
  - Therapeutic product effect incomplete [Unknown]
